FAERS Safety Report 5701105-5 (Version None)
Quarter: 2008Q2

REPORT INFORMATION
  Report Type: 
  Country: None (occurrence: None)
  Receive Date: 20080410
  Receipt Date: 20080403
  Transmission Date: 20081010
  Serious: Yes (Other)
  Sender: FDA-Public Use
  Company Number: AR-ASTRAZENECA-2008UW06788

PATIENT
  Age: 57 Year
  Sex: Female
  Weight: 74 kg

DRUGS (2)
  1. NEXIUM [Suspect]
     Indication: REFLUX OESOPHAGITIS
     Route: 048
     Dates: start: 20040101, end: 20080301
  2. LOSARTAN POTASSIUM [Concomitant]
     Indication: HYPERTENSION
     Route: 048
     Dates: end: 20080301

REACTIONS (1)
  - LUPUS-LIKE SYNDROME [None]
